FAERS Safety Report 23106840 (Version 3)
Quarter: 2023Q4

REPORT INFORMATION
  Report Type: Spontaneous
  Country: US (occurrence: US)
  Receive Date: 20231026
  Receipt Date: 20231122
  Transmission Date: 20240109
  Serious: No
  Sender: FDA-Public Use
  Company Number: US-SANOFI-01813346

PATIENT
  Age: 80 Year
  Sex: Female

DRUGS (1)
  1. LANTUS SOLOSTAR [Suspect]
     Active Substance: INSULIN GLARGINE
     Indication: Type 2 diabetes mellitus
     Dosage: 10 IU, QD
     Dates: start: 2023

REACTIONS (2)
  - Blood glucose increased [Unknown]
  - Device issue [Unknown]

NARRATIVE: CASE EVENT DATE: 20230101
